FAERS Safety Report 7225496-1 (Version None)
Quarter: 2011Q1

REPORT INFORMATION
  Report Type: 
  Country: None (occurrence: None)
  Receive Date: 20110113
  Receipt Date: 20110107
  Transmission Date: 20110831
  Serious: Yes (Death)
  Sender: FDA-Public Use
  Company Number: US-MERCK-1101USA00879

PATIENT
  Age: 51 Year
  Sex: Female

DRUGS (4)
  1. MORPHINE [Suspect]
     Route: 065
  2. DIPHENHYDRAMINE HYDROCHLORIDE [Suspect]
     Route: 065
  3. TAPAZOLE [Suspect]
     Route: 065
  4. ZOCOR [Suspect]
     Route: 048

REACTIONS (2)
  - OVERDOSE [None]
  - COMPLETED SUICIDE [None]
